FAERS Safety Report 14489868 (Version 6)
Quarter: 2018Q3

REPORT INFORMATION
  Report Type: Spontaneous
  Country: CA (occurrence: CA)
  Receive Date: 20180206
  Receipt Date: 20180917
  Transmission Date: 20181010
  Serious: Yes (Hospitalization, Other)
  Sender: FDA-Public Use
  Company Number: CA-ROCHE-2064316

PATIENT
  Age: 65 Year
  Sex: Female

DRUGS (12)
  1. XOLAIR [Suspect]
     Active Substance: OMALIZUMAB
     Indication: ASTHMA
     Dosage: 150 MG, EVERY 4 WEEKS
     Route: 058
     Dates: start: 20160727
  2. ADVAIR HFA [Concomitant]
     Active Substance: FLUTICASONE PROPIONATE\SALMETEROL XINAFOATE
     Indication: PRODUCT USED FOR UNKNOWN INDICATION
     Dosage: 2 DF, BID
     Route: 065
     Dates: start: 20110418
  3. XOLAIR [Suspect]
     Active Substance: OMALIZUMAB
     Dosage: UNK
     Route: 058
     Dates: start: 20170711
  4. XOLAIR [Suspect]
     Active Substance: OMALIZUMAB
     Dosage: UNK
     Route: 058
     Dates: start: 20171027
  5. VENTOLIN [Concomitant]
     Active Substance: ALBUTEROL SULFATE
     Indication: PRODUCT USED FOR UNKNOWN INDICATION
     Dosage: 2 DF, PRN
     Route: 065
     Dates: start: 20110418
  6. XOLAIR [Suspect]
     Active Substance: OMALIZUMAB
     Dosage: UNK
     Route: 058
     Dates: start: 20170516
  7. XOLAIR [Suspect]
     Active Substance: OMALIZUMAB
     Dosage: UNK
     Route: 058
     Dates: start: 20170613
  8. PREDNISONE. [Concomitant]
     Active Substance: PREDNISONE
     Indication: PRODUCT USED FOR UNKNOWN INDICATION
     Dosage: (INTERMITTENT ESPECIALLY IN WINTER TIME)
     Route: 065
  9. XOLAIR [Suspect]
     Active Substance: OMALIZUMAB
     Dosage: 150 MG, EVERY 4 WEEKS
     Route: 058
     Dates: start: 20171219
  10. OMNARIS [Concomitant]
     Active Substance: CICLESONIDE
     Indication: PRODUCT USED FOR UNKNOWN INDICATION
     Route: 065
  11. SPIRIVA [Concomitant]
     Active Substance: TIOTROPIUM BROMIDE MONOHYDRATE
     Indication: PRODUCT USED FOR UNKNOWN INDICATION
     Dosage: 1 DF, QD
     Route: 065
     Dates: start: 20160401
  12. PREDNISONE. [Concomitant]
     Active Substance: PREDNISONE
     Dosage: UNK
     Route: 065

REACTIONS (43)
  - Sensation of foreign body [Unknown]
  - Osteoporosis [Unknown]
  - Blood pressure increased [Recovering/Resolving]
  - Stress [Unknown]
  - Forced vital capacity decreased [Not Recovered/Not Resolved]
  - Arthritis [Unknown]
  - Chest discomfort [Unknown]
  - Hypoacusis [Unknown]
  - Headache [Unknown]
  - Sensitivity to weather change [Unknown]
  - Malaise [Not Recovered/Not Resolved]
  - Chest pain [Unknown]
  - Migraine [Unknown]
  - Dyspnoea [Recovering/Resolving]
  - General physical health deterioration [Not Recovered/Not Resolved]
  - Gastrooesophageal reflux disease [Unknown]
  - Contusion [Not Recovered/Not Resolved]
  - Cough [Unknown]
  - Feeling hot [Recovering/Resolving]
  - Procedural headache [Not Recovered/Not Resolved]
  - Forced expiratory flow decreased [Unknown]
  - Bronchitis [Unknown]
  - Flushing [Unknown]
  - Nasopharyngitis [Unknown]
  - Influenza [Unknown]
  - Joint swelling [Unknown]
  - Wheezing [Not Recovered/Not Resolved]
  - Renal cyst [Unknown]
  - Fear [Unknown]
  - Back pain [Not Recovered/Not Resolved]
  - Cardiac disorder [Unknown]
  - Oropharyngeal pain [Not Recovered/Not Resolved]
  - Obstructive airways disorder [Unknown]
  - Asthma [Not Recovered/Not Resolved]
  - Erythema [Unknown]
  - Asthenia [Unknown]
  - Chronic obstructive pulmonary disease [Unknown]
  - Forced expiratory volume decreased [Not Recovered/Not Resolved]
  - Fall [Unknown]
  - Dizziness [Unknown]
  - Myocardial infarction [Unknown]
  - Myocardial strain [Unknown]
  - Breath sounds abnormal [Unknown]

NARRATIVE: CASE EVENT DATE: 20160727
